FAERS Safety Report 25154219 (Version 1)
Quarter: 2025Q2

REPORT INFORMATION
  Report Type: Spontaneous
  Country: US (occurrence: US)
  Receive Date: 20250403
  Receipt Date: 20250403
  Transmission Date: 20250716
  Serious: No
  Sender: ABBVIE
  Company Number: US-ABBVIE-6203777

PATIENT

DRUGS (1)
  1. UPADACITINIB [Suspect]
     Active Substance: UPADACITINIB
     Indication: Benign familial pemphigus
     Route: 048

REACTIONS (2)
  - Off label use [Recovering/Resolving]
  - Drug effective for unapproved indication [Recovering/Resolving]
